FAERS Safety Report 6193917-1 (Version None)
Quarter: 2009Q2

REPORT INFORMATION
  Report Type: 
  Country: None (occurrence: None)
  Receive Date: 20090518
  Receipt Date: 20090506
  Transmission Date: 20091009
  Serious: Yes (Other)
  Sender: FDA-Public Use
  Company Number: US-PFIZER INC-2009210020

PATIENT
  Sex: Female

DRUGS (6)
  1. PROVERA [Suspect]
     Indication: MENOPAUSAL SYMPTOMS
     Dosage: 10 MG, UNK
     Route: 048
     Dates: start: 19940125, end: 19990201
  2. ETHINYL ESTRADIOL AND NORETHINDRONE [Suspect]
     Indication: MENOPAUSAL SYMPTOMS
     Dosage: 50, 140
     Dates: start: 19991018, end: 20000314
  3. ESTRATEST [Suspect]
     Indication: MENOPAUSAL SYMPTOMS
     Dosage: UNK
     Dates: start: 19971201, end: 19990201
  4. PREMARIN [Suspect]
     Indication: MENOPAUSAL SYMPTOMS
     Dosage: 0.625 MG, 1X/DAY
     Route: 048
     Dates: start: 19940125, end: 19990201
  5. PREMPRO [Suspect]
     Indication: MENOPAUSAL SYMPTOMS
     Dosage: 0.625, 2.5
     Dates: start: 19950601, end: 20020301
  6. TENORMIN [Concomitant]
     Indication: HYPERTENSION
     Dosage: 50 MG, UNK
     Dates: start: 19960501

REACTIONS (2)
  - BREAST CANCER [None]
  - BREAST CANCER FEMALE [None]
